FAERS Safety Report 15992452 (Version 1)
Quarter: 2019Q1

REPORT INFORMATION
  Report Type: Spontaneous
  Country: FR (occurrence: FR)
  Receive Date: 20190221
  Receipt Date: 20190221
  Transmission Date: 20190418
  Serious: Yes (Other)
  Sender: FDA-Public Use
  Company Number: FR-CANTON LABORATORIES, LLC-2063026

PATIENT
  Age: 35 Year
  Sex: Female

DRUGS (3)
  1. NAPROSYN [Suspect]
     Active Substance: NAPROXEN
     Indication: TOOTH INFECTION
     Route: 048
     Dates: start: 201801
  2. METRONIDAZOLE. [Suspect]
     Active Substance: METRONIDAZOLE
     Route: 048
     Dates: start: 201801, end: 201801
  3. SPIRAMYCINE [Suspect]
     Active Substance: SPIRAMYCIN
     Route: 048
     Dates: start: 201801, end: 201801

REACTIONS (5)
  - Palpitations [Recovered/Resolved with Sequelae]
  - Dizziness [Recovered/Resolved]
  - Dysphonia [Recovered/Resolved]
  - Pruritus [Recovered/Resolved]
  - Dyspnoea [Recovered/Resolved]

NARRATIVE: CASE EVENT DATE: 201801
